FAERS Safety Report 9483923 (Version 2)
Quarter: 2013Q3

REPORT INFORMATION
  Report Type: Spontaneous
  Country: CA (occurrence: CA)
  Receive Date: 20130828
  Receipt Date: 20130828
  Transmission Date: 20140515
  Serious: Yes (Death, Hospitalization)
  Sender: FDA-Public Use
  Company Number: CA-AMGEN-KDL286371

PATIENT
  Age: 26 Year
  Sex: Female
  Weight: 55.4 kg

DRUGS (2)
  1. ENBREL [Suspect]
     Indication: RHEUMATOID ARTHRITIS
     Dosage: UNK UNK, QWK
     Route: 065
     Dates: start: 20071204, end: 200904
  2. PREDNISONE [Concomitant]

REACTIONS (7)
  - Pneumonia [Unknown]
  - Death [Fatal]
  - Injection site reaction [Unknown]
  - Injection site erythema [Unknown]
  - Injection site pruritus [Unknown]
  - Herpes zoster [Recovered/Resolved]
  - Rash generalised [Not Recovered/Not Resolved]
